FAERS Safety Report 21629091 (Version 1)
Quarter: 2022Q4

REPORT INFORMATION
  Report Type: Spontaneous
  Country: US (occurrence: US)
  Receive Date: 20221122
  Receipt Date: 20221122
  Transmission Date: 20230113
  Serious: No
  Sender: FDA-Public Use
  Company Number: US-SANOFI-01365630

PATIENT
  Age: 36 Year
  Sex: Male

DRUGS (1)
  1. DUPIXENT [Suspect]
     Active Substance: DUPILUMAB
     Indication: Dermatitis atopic
     Dosage: 600 MG, 1X
     Dates: start: 20221111, end: 20221111

REACTIONS (5)
  - Inflammation [Unknown]
  - Hyperhidrosis [Unknown]
  - Erythema [Unknown]
  - Arthralgia [Unknown]
  - Gout [Unknown]

NARRATIVE: CASE EVENT DATE: 20221101
